FAERS Safety Report 7581281-2 (Version None)
Quarter: 2011Q2

REPORT INFORMATION
  Report Type: 
  Country: None (occurrence: None)
  Receive Date: 20110629
  Receipt Date: 20110531
  Transmission Date: 20111010
  Serious: Yes (Hospitalization, Other)
  Sender: FDA-Public Use
  Company Number: US-BAYER-201041511NA

PATIENT
  Age: 35 Year
  Sex: Female
  Weight: 108 kg

DRUGS (2)
  1. YASMIN [Suspect]
     Indication: MENORRHAGIA
  2. YASMIN [Suspect]
     Indication: ACNE

REACTIONS (2)
  - INJURY [None]
  - CHOLELITHIASIS [None]
